FAERS Safety Report 6257363-4 (Version None)
Quarter: 2009Q3

REPORT INFORMATION
  Report Type: 
  Country: None (occurrence: None)
  Receive Date: 20090706
  Receipt Date: 20090702
  Transmission Date: 20100115
  Serious: Yes (Death, Other)
  Sender: FDA-Public Use
  Company Number: PHHY2009JP26941

PATIENT
  Sex: Male
  Weight: 41 kg

DRUGS (8)
  1. SIMULECT [Suspect]
     Indication: RENAL TRANSPLANT
     Dosage: 20 MG
     Route: 042
     Dates: start: 20040416, end: 20040416
  2. SIMULECT [Suspect]
     Dosage: 20 MG
     Route: 042
     Dates: start: 20040420, end: 20040420
  3. PROGRAF [Suspect]
     Indication: RENAL TRANSPLANT
     Dosage: UNK
     Route: 048
     Dates: start: 20040412, end: 20040418
  4. PROGRAF [Suspect]
     Dosage: UNK
     Route: 042
     Dates: start: 20040412, end: 20040418
  5. CELLCEPT [Suspect]
     Indication: RENAL TRANSPLANT
     Dosage: 1500 MG/DAY
     Route: 048
     Dates: start: 20040414, end: 20040423
  6. PREDNISOLONE [Suspect]
     Indication: RENAL TRANSPLANT
     Dosage: 60 MG/DAY
     Route: 042
     Dates: start: 20040415, end: 20040425
  7. PREDNISOLONE [Suspect]
     Dosage: 20 MG/DAY
  8. FRESH FROZEN PLASMA [Concomitant]
     Dosage: 10 IU, UNK
     Route: 042
     Dates: start: 20040425, end: 20040425

REACTIONS (6)
  - ABDOMINAL PAIN [None]
  - ANAEMIA [None]
  - DISSEMINATED INTRAVASCULAR COAGULATION [None]
  - GASTROINTESTINAL NECROSIS [None]
  - RENAL GRAFT LOSS [None]
  - URINE OUTPUT DECREASED [None]
